FAERS Safety Report 5144509-4 (Version None)
Quarter: 2006Q4

REPORT INFORMATION
  Report Type: 
  Country: None (occurrence: None)
  Receive Date: 20061031
  Receipt Date: 20061024
  Transmission Date: 20070319
  Serious: Yes (Disabling)
  Sender: FDA-Public Use
  Company Number: GBWYE235516OCT06

PATIENT
  Age: 57 Year
  Sex: Female

DRUGS (4)
  1. GEMTUZUMAB OZOGAMICIN [Suspect]
     Indication: CHEMOTHERAPY
     Dosage: AS PROTOCOL DETERMINED
  2. CIPROFLOXACIN [Concomitant]
  3. ITRACONAZOLE [Concomitant]
  4. RANITIDINE [Concomitant]

REACTIONS (2)
  - IMMUNE SYSTEM DISORDER [None]
  - PANCYTOPENIA [None]
